FAERS Safety Report 13208249 (Version 1)
Quarter: 2017Q1

REPORT INFORMATION
  Report Type: Spontaneous
  Country: US (occurrence: US)
  Receive Date: 20170209
  Receipt Date: 20170209
  Transmission Date: 20170428
  Serious: No
  Sender: FDA-Public Use
  Company Number: US-ROCHE-1723132

PATIENT
  Age: 12 Year
  Sex: Female
  Weight: 47.22 kg

DRUGS (2)
  1. ADORA CALCIUM SUPPLEMENT [Concomitant]
  2. NUTROPIN AQ [Suspect]
     Active Substance: SOMATROPIN
     Indication: GROWTH HORMONE DEFICIENCY
     Dosage: NUSPIN 20
     Route: 058
     Dates: start: 20160201

REACTIONS (2)
  - Dizziness [Recovered/Resolved]
  - Eye swelling [Recovered/Resolved]

NARRATIVE: CASE EVENT DATE: 20160227
